FAERS Safety Report 6161545-X (Version None)
Quarter: 2009Q2

REPORT INFORMATION
  Report Type: 
  Country: None (occurrence: None)
  Receive Date: 20090421
  Receipt Date: 20090416
  Transmission Date: 20091009
  Serious: Yes (Hospitalization)
  Sender: FDA-Public Use
  Company Number: US-NOVOPROD-279662

PATIENT
  Age: 47 Year
  Sex: Female

DRUGS (5)
  1. NOVOLOG [Suspect]
     Indication: INSULIN-REQUIRING TYPE 2 DIABETES MELLITUS
     Dosage: SLIDING SCALE
     Route: 058
     Dates: start: 20080301, end: 20080901
  2. LEVEMIR [Concomitant]
     Indication: INSULIN-REQUIRING TYPE 2 DIABETES MELLITUS
     Route: 058
  3. ACTOS [Concomitant]
     Indication: TYPE 2 DIABETES MELLITUS
  4. ABILIFY [Concomitant]
     Indication: TYPE 2 DIABETES MELLITUS
  5. LEXAPRO [Concomitant]
     Indication: DRUG USE FOR UNKNOWN INDICATION

REACTIONS (9)
  - ASTHMA [None]
  - BACK PAIN [None]
  - BLOOD GLUCOSE FLUCTUATION [None]
  - DRUG DISPENSING ERROR [None]
  - MUSCLE SPASMS [None]
  - OEDEMA PERIPHERAL [None]
  - PNEUMONIA [None]
  - PRURITUS [None]
  - RASH [None]
